FAERS Safety Report 22079698 (Version 4)
Quarter: 2023Q2

REPORT INFORMATION
  Report Type: Spontaneous
  Country: JP (occurrence: None)
  Receive Date: 20230309
  Receipt Date: 20230404
  Transmission Date: 20230721
  Serious: Yes (Disabling)
  Sender: FDA-Public Use
  Company Number: JP-ROCHE-3301127

PATIENT
  Age: 58 Year
  Sex: Female

DRUGS (6)
  1. XOFLUZA [Suspect]
     Active Substance: BALOXAVIR MARBOXIL
     Indication: Influenza
     Route: 048
     Dates: start: 20230208, end: 20230208
  2. HERBALS [Suspect]
     Active Substance: HERBALS
     Indication: Influenza
     Route: 048
     Dates: start: 20230208, end: 20230224
  3. EPHEDRA SINICA STEM\HERBALS [Suspect]
     Active Substance: EPHEDRA SINICA STEM\HERBALS
     Indication: Influenza
     Route: 048
     Dates: end: 20230224
  4. EPRAZINONE [Concomitant]
     Active Substance: EPRAZINONE
     Route: 048
     Dates: start: 20230208, end: 20230214
  5. CARBOCYSTEINE [Concomitant]
     Active Substance: CARBOCYSTEINE
     Route: 048
     Dates: start: 20230208, end: 20230214
  6. BUDESONIDE [Concomitant]
     Active Substance: BUDESONIDE

REACTIONS (1)
  - Pneumonia influenzal [Recovered/Resolved]

NARRATIVE: CASE EVENT DATE: 20230225
